FAERS Safety Report 21558432 (Version 2)
Quarter: 2022Q4

REPORT INFORMATION
  Report Type: Spontaneous
  Country: US (occurrence: US)
  Receive Date: 20221107
  Receipt Date: 20221130
  Transmission Date: 20230112
  Serious: No
  Sender: FDA-Public Use
  Company Number: US-LUPIN PHARMACEUTICALS INC.-2022-12975

PATIENT

DRUGS (2)
  1. ALBUTEROL SULFATE [Suspect]
     Active Substance: ALBUTEROL SULFATE
     Indication: Chest discomfort
     Dosage: UNK, (2 PUFFS EVERY SIX HOURS)
     Dates: start: 20221013
  2. ALBUTEROL SULFATE [Suspect]
     Active Substance: ALBUTEROL SULFATE
     Indication: COVID-19

REACTIONS (5)
  - Illness [Unknown]
  - Product dose omission issue [Unknown]
  - Cough [Unknown]
  - Device delivery system issue [Unknown]
  - Off label use [Unknown]
